FAERS Safety Report 8041107-X (Version None)
Quarter: 2012Q1

REPORT INFORMATION
  Report Type: 
  Country: None (occurrence: None)
  Receive Date: 20120112
  Receipt Date: 20120109
  Transmission Date: 20120608
  Serious: Yes (Death)
  Sender: FDA-Public Use
  Company Number: US-CELGENEUS-163-21880-12010856

PATIENT
  Sex: Male
  Weight: 75.818 kg

DRUGS (9)
  1. ACETAMINOPHEN W/ CODEINE TAB [Concomitant]
     Dosage: 300MG/6MG
     Route: 065
  2. ACYCLOVIR [Concomitant]
     Dosage: 800 MILLIGRAM
     Route: 065
  3. CITALOPRAM [Concomitant]
     Dosage: 10 MILLIGRAM
     Route: 065
  4. OXYCODONE HCL [Concomitant]
     Dosage: 15 MILLIGRAM
     Route: 065
  5. PROCHLORPERAZINE MALEATE [Concomitant]
     Dosage: 5 MILLIGRAM
     Route: 065
  6. AMLODIPINE [Concomitant]
     Dosage: 2.5 MILLIGRAM
     Route: 065
  7. ENALAPRIL MALEATE [Concomitant]
     Dosage: 2.5 MILLIGRAM
     Route: 065
  8. REVLIMID [Suspect]
     Indication: MULTIPLE MYELOMA
     Dosage: 15 MILLIGRAM
     Route: 048
     Dates: start: 20110817, end: 20111213
  9. METOPROLOL TARTRATE [Concomitant]
     Dosage: 50 MILLIGRAM
     Route: 065

REACTIONS (1)
  - DEATH [None]
